FAERS Safety Report 8564811-3 (Version None)
Quarter: 2012Q3

REPORT INFORMATION
  Report Type: 
  Country: None (occurrence: None)
  Receive Date: 20120803
  Receipt Date: 20120726
  Transmission Date: 20120928
  Serious: Yes (Hospitalization, Other)
  Sender: FDA-Public Use
  Company Number: FR-009507513-2012SP033871

PATIENT

DRUGS (15)
  1. RIBAVIRIN [Suspect]
     Indication: HEPATITIS C
     Dosage: 800 MG, QD
     Dates: start: 20111115
  2. SERTRALINE HYDROCHLORIDE [Concomitant]
     Indication: AFFECTIVE DISORDER
     Dosage: 50 MG, TID
     Dates: start: 20100421
  3. CRESTOR [Concomitant]
     Indication: TYPE V HYPERLIPIDAEMIA
     Dosage: 10 MG, QD
     Dates: start: 19930116
  4. CRESTOR [Concomitant]
     Dosage: 5 MG, QD
     Dates: start: 19930116
  5. LEVOCARNIL [Concomitant]
     Indication: MUSCLE SPASMS
     Dosage: 100 MG, TID
     Dates: start: 20120307
  6. BOCEPREVIR [Suspect]
     Indication: HEPATITIS C
     Dosage: 2400 MG, QD
     Dates: start: 20111213
  7. TRUVADA [Suspect]
     Indication: HIV INFECTION
     Dosage: 245 MG, QOD
     Dates: start: 20070123
  8. PEGINTERFERON ALFA-2B [Suspect]
     Indication: HEPATITIS C
     Dosage: 80 MICROGRAM, QW
     Dates: start: 20111115
  9. NORVIR [Concomitant]
     Indication: HIV INFECTION
     Dosage: 100 MG, QD
     Dates: start: 20070123
  10. NEORECORMON [Concomitant]
     Indication: ANAEMIA
     Dosage: 30000 IU, QW
     Dates: start: 20120307
  11. REYATAZ [Concomitant]
     Indication: HIV INFECTION
     Dosage: 300 MG, QD
     Dates: start: 20070123
  12. TAMSULOSIN HYDROCHLORIDE [Concomitant]
     Indication: BENIGN PROSTATIC HYPERPLASIA
     Dosage: 0.4 MG, QD
     Dates: start: 20110804
  13. ACETAMINOPHEN [Suspect]
     Indication: INFLUENZA LIKE ILLNESS
     Dosage: 1000 MG, QD
     Dates: start: 20111115
  14. PLAVIX [Concomitant]
     Indication: ANGER
     Dosage: 75 MG, QD
     Dates: start: 19930116
  15. DEXERYL TABLETS [Concomitant]
     Indication: DRY SKIN
     Dosage: 1 DF, QD
     Dates: start: 20120307

REACTIONS (3)
  - MASS [None]
  - SEPSIS [None]
  - GLOMERULONEPHROPATHY [None]
